FAERS Safety Report 8935200 (Version 1)
Quarter: 2012Q4

REPORT INFORMATION
  Report Type: 
  Country: JP (occurrence: JP)
  Receive Date: 20121129
  Receipt Date: 20121129
  Transmission Date: 20130627
  Serious: Yes (Hospitalization)
  Sender: FDA-Public Use
  Company Number: JP-NAPPMUNDI-GBR-2012-0012215

PATIENT
  Sex: Female

DRUGS (2)
  1. BUPRENORPHINE TRANSDERMAL SYSTEM 5 MG [Suspect]
     Indication: PRODUCT USED FOR UNKNOWN INDICATION
     Dosage: 5 mcg, q1h
     Route: 062
  2. NOVAMIN                            /00013301/ [Concomitant]
     Route: 065

REACTIONS (1)
  - Vertigo [Unknown]
